FAERS Safety Report 6099725-4 (Version None)
Quarter: 2009Q1

REPORT INFORMATION
  Report Type: 
  Country: None (occurrence: None)
  Receive Date: 20090226
  Receipt Date: 20090211
  Transmission Date: 20090719
  Serious: Yes (Other)
  Sender: FDA-Public Use
  Company Number: 2009S1002425

PATIENT
  Age: 64 Year
  Sex: Female

DRUGS (8)
  1. LANSOPRAZOLE [Suspect]
     Indication: GASTROINTESTINAL DISORDER
     Dosage: ; DAILY;
     Dates: start: 20081206, end: 20090108
  2. OMEPRAZOLE [Suspect]
     Indication: GASTROINTESTINAL DISORDER
     Dates: start: 20081230
  3. ALLOPURINOL [Suspect]
     Indication: MULTIPLE MYELOMA
     Dosage: ; DAILY;
     Dates: start: 20081206, end: 20090108
  4. THALIDOMIDE [Suspect]
     Indication: MULTIPLE MYELOMA
     Dosage: ; DAILY; ORAL
     Route: 048
     Dates: start: 20081210, end: 20090111
  5. CEPHALEXIN [Concomitant]
  6. CYCLOPHOSPHAMIDE [Concomitant]
  7. DEXAMETHASONE [Concomitant]
  8. FEMHRT [Concomitant]

REACTIONS (3)
  - DRUG ADMINISTRATION ERROR [None]
  - RASH GENERALISED [None]
  - RASH MORBILLIFORM [None]
